FAERS Safety Report 10113589 (Version 1)
Quarter: 2014Q2

REPORT INFORMATION
  Report Type: Spontaneous
  Country: US (occurrence: US)
  Receive Date: 20140425
  Receipt Date: 20140425
  Transmission Date: 20141212
  Serious: No
  Sender: FDA-Public Use
  Company Number: US-BAYER-2014-059409

PATIENT
  Sex: Male

DRUGS (2)
  1. BAYER EXTRA STRENGTH BACK + BODY PAIN [Suspect]
     Indication: ARTHRALGIA
     Dosage: 2 DF, PRN
     Route: 048
     Dates: start: 2013
  2. ALEVE CAPLET [Suspect]
     Indication: ARTHRALGIA
     Dosage: DF (DOSE AS USED)
     Route: 048
     Dates: start: 2013

REACTIONS (2)
  - Drug ineffective [None]
  - Incorrect dose administered [None]
